FAERS Safety Report 7722341-2 (Version None)
Quarter: 2011Q3

REPORT INFORMATION
  Report Type: 
  Country: None (occurrence: None)
  Receive Date: 20110831
  Receipt Date: 20110822
  Transmission Date: 20111222
  Serious: Yes (Hospitalization)
  Sender: FDA-Public Use
  Company Number: US-US-EMD SERONO, INC.-7078941

PATIENT
  Sex: Female

DRUGS (2)
  1. REBIF [Suspect]
     Indication: MULTIPLE SCLEROSIS
     Route: 058
     Dates: start: 20100902
  2. COUMADIN [Concomitant]

REACTIONS (9)
  - MOBILITY DECREASED [None]
  - URINARY TRACT INFECTION [None]
  - PARALYSIS [None]
  - HAEMORRHAGE [None]
  - CENTRAL NERVOUS SYSTEM LESION [None]
  - PHYSICAL ASSAULT [None]
  - INTERNATIONAL NORMALISED RATIO INCREASED [None]
  - HEAD INJURY [None]
  - CONTUSION [None]
